FAERS Safety Report 5332222-X (Version None)
Quarter: 2007Q2

REPORT INFORMATION
  Report Type: 
  Country: None (occurrence: None)
  Receive Date: 20070306
  Receipt Date: 20060502
  Transmission Date: 20071010
  Serious: Yes (Hospitalization)
  Sender: FDA-Public Use
  Company Number: A03200602815

PATIENT
  Age: 58 Year
  Sex: Male
  Weight: 99.77 kg

DRUGS (2)
  1. PLAVIX [Suspect]
     Indication: CORONARY ARTERY BYPASS
     Dosage: 75 MG QD - ORAL
     Route: 048
     Dates: start: 20050701
  2. ASPIRIN [Concomitant]

REACTIONS (1)
  - NON-CARDIAC CHEST PAIN [None]
